FAERS Safety Report 17219519 (Version 1)
Quarter: 2019Q4

REPORT INFORMATION
  Report Type: Spontaneous
  Country: US (occurrence: US)
  Receive Date: 20191231
  Receipt Date: 20191231
  Transmission Date: 20200122
  Serious: No
  Sender: FDA-Public Use
  Company Number: US-PFIZER INC-2019557359

PATIENT
  Age: 70 Year
  Sex: Male

DRUGS (1)
  1. MORPHINE SULFATE. [Suspect]
     Active Substance: MORPHINE SULFATE
     Indication: SPINAL STENOSIS

REACTIONS (6)
  - Product use in unapproved indication [Unknown]
  - Drug hypersensitivity [Unknown]
  - Off label use [Unknown]
  - Anxiety [Unknown]
  - Blood pressure increased [Unknown]
  - Nausea [Unknown]

NARRATIVE: CASE EVENT DATE: 2014
